FAERS Safety Report 11260510 (Version 2)
Quarter: 2015Q3

REPORT INFORMATION
  Report Type: Spontaneous
  Country: IT (occurrence: IT)
  Receive Date: 20150710
  Receipt Date: 20150807
  Transmission Date: 20151125
  Serious: Yes (Life-Threatening, Hospitalization)
  Sender: FDA-Public Use
  Company Number: IT-ASTRAZENECA-2015SE67172

PATIENT
  Age: 71 Year
  Sex: Male

DRUGS (8)
  1. SILODOSIN [Concomitant]
     Active Substance: SILODOSIN
     Indication: BENIGN PROSTATIC HYPERPLASIA
  2. QUETIAPINE FUMARATE XR [Suspect]
     Active Substance: QUETIAPINE FUMARATE
     Indication: BIPOLAR DISORDER
     Route: 048
  3. QUETIAPINE FUMARATE XR [Suspect]
     Active Substance: QUETIAPINE FUMARATE
     Indication: BIPOLAR DISORDER
     Route: 048
  4. LAMOTRIGINE. [Concomitant]
     Active Substance: LAMOTRIGINE
     Indication: BIPOLAR DISORDER
  5. PREGABALIN. [Concomitant]
     Active Substance: PREGABALIN
     Indication: BIPOLAR DISORDER
  6. METFORMIN [Concomitant]
     Active Substance: METFORMIN HYDROCHLORIDE
     Indication: TYPE 2 DIABETES MELLITUS
  7. VENLAFAXINE [Concomitant]
     Active Substance: VENLAFAXINE HYDROCHLORIDE
     Indication: BIPOLAR DISORDER
  8. METOPROLOL [Concomitant]
     Active Substance: METOPROLOL
     Indication: HYPERTENSION

REACTIONS (15)
  - Suicide attempt [Unknown]
  - Agitation [Unknown]
  - Respiratory failure [Unknown]
  - Intentional overdose [Recovered/Resolved]
  - Sinus tachycardia [Unknown]
  - Aspartate aminotransferase increased [Unknown]
  - Coma [Unknown]
  - Bundle branch block right [Unknown]
  - Toxicity to various agents [None]
  - Electrocardiogram QT prolonged [Unknown]
  - Hypotension [Recovered/Resolved]
  - Alanine aminotransferase increased [Unknown]
  - Staphylococcal sepsis [None]
  - Acidosis [Recovered/Resolved]
  - Device related sepsis [None]
